FAERS Safety Report 13443420 (Version 1)
Quarter: 2017Q2

REPORT INFORMATION
  Report Type: Spontaneous
  Country: US (occurrence: US)
  Receive Date: 20170413
  Receipt Date: 20170413
  Transmission Date: 20170830
  Serious: No
  Sender: FDA-Public Use
  Company Number: None

PATIENT
  Age: 69 Year
  Sex: Male

DRUGS (1)
  1. ZYTIGA [Suspect]
     Active Substance: ABIRATERONE ACETATE
     Indication: PROSTATE CANCER

REACTIONS (5)
  - Vomiting [None]
  - Arrhythmia [None]
  - Treatment noncompliance [None]
  - Drug intolerance [None]
  - Rash [None]

NARRATIVE: CASE EVENT DATE: 20170413
